FAERS Safety Report 6001983-9 (Version None)
Quarter: 2008Q4

REPORT INFORMATION
  Report Type: 
  Country: None (occurrence: None)
  Receive Date: 20081212
  Receipt Date: 20081204
  Transmission Date: 20090506
  Serious: Yes (Hospitalization, Other)
  Sender: FDA-Public Use
  Company Number: WAES 0806USA02135

PATIENT
  Age: 33 Year
  Sex: Male
  Weight: 60.782 kg

DRUGS (31)
  1. CAP VORINOSTAT UNK [Suspect]
     Indication: ACUTE MYELOID LEUKAEMIA
     Dosage: 400 MG/DAILY/PO
     Route: 048
     Dates: start: 20080529, end: 20080611
  2. INFUSION (FORM) DECITABINE UNK [Suspect]
     Indication: ACUTE MYELOID LEUKAEMIA
     Dosage: 34 MG/DAILY/IV
     Route: 042
     Dates: start: 20080529, end: 20080602
  3. BENADRYL [Concomitant]
  4. KLOR-CON [Concomitant]
  5. LACTINEX [Concomitant]
  6. LYRICA [Concomitant]
  7. PERCOCET [Concomitant]
  8. PHENERGAN (PROMETHAZINE HYDROCHLO [Concomitant]
  9. PROGASTRIT (ALUMINUM HYRDOXIDE [Concomitant]
  10. PROTONIX [Concomitant]
  11. REGLAN [Concomitant]
  12. THORAZINE [Concomitant]
  13. ZOSYN [Concomitant]
  14. ACETAMINOPHEN [Concomitant]
  15. ACYCLOVIR [Concomitant]
  16. CEFEPIME [Concomitant]
  17. CLOTRIMAZOLE [Concomitant]
  18. DOCUSATE SODIUM [Concomitant]
  19. HYDROCORTISONE [Concomitant]
  20. HYDROMORPHONE HYDROCHLORIDE [Concomitant]
  21. LORAZEPAM [Concomitant]
  22. MAGNESIUM CITRATE [Concomitant]
  23. MOXIFLOXACIN HYDROCHLORIDE [Concomitant]
  24. ONDANSETRON [Concomitant]
  25. PHYTONADIONE [Concomitant]
  26. PROCHLORPERAZINE [Concomitant]
  27. RANITIDINE [Concomitant]
  28. SENNA [Concomitant]
  29. VANCOMYCIN [Concomitant]
  30. VORICONAZOLE [Concomitant]
  31. ZOLPIDEM TARTRATE [Concomitant]

REACTIONS (30)
  - ABDOMINAL PAIN [None]
  - ABSCESS [None]
  - ACUTE RESPIRATORY DISTRESS SYNDROME [None]
  - ANXIETY [None]
  - ATELECTASIS [None]
  - BACTERIAL SEPSIS [None]
  - BLOOD GLUCOSE INCREASED [None]
  - CARDIAC FAILURE [None]
  - CELLULITIS [None]
  - CYST [None]
  - ELECTROCARDIOGRAM T WAVE ABNORMAL [None]
  - ELECTROCARDIOGRAM T WAVE INVERSION [None]
  - ENTEROCOCCAL INFECTION [None]
  - ERYTHEMA [None]
  - HAEMORRHOIDS [None]
  - INSOMNIA [None]
  - KLEBSIELLA SEPSIS [None]
  - LIVER DISORDER [None]
  - MITRAL VALVE INCOMPETENCE [None]
  - NAUSEA [None]
  - NEUTROPENIA [None]
  - PAIN OF SKIN [None]
  - PANCYTOPENIA [None]
  - PERICARDIAL EFFUSION [None]
  - PLEURAL EFFUSION [None]
  - PNEUMONIA [None]
  - PYREXIA [None]
  - RENAL DISORDER [None]
  - SKIN LESION [None]
  - VOMITING [None]
